FAERS Safety Report 20957938 (Version 1)
Quarter: 2022Q2

REPORT INFORMATION
  Report Type: Spontaneous
  Country: US (occurrence: US)
  Receive Date: 20220614
  Receipt Date: 20220614
  Transmission Date: 20220721
  Serious: Yes (Other)
  Sender: FDA-Public Use
  Company Number: US-ELI_LILLY_AND_COMPANY-US202206001494

PATIENT
  Sex: Female

DRUGS (1)
  1. FORTEO [Suspect]
     Active Substance: TERIPARATIDE
     Indication: Product used for unknown indication
     Dosage: UNK UNK, UNKNOWN
     Route: 065

REACTIONS (8)
  - Head and neck cancer [Unknown]
  - Neoplasm malignant [Unknown]
  - Spinal fracture [Unknown]
  - Foot fracture [Unknown]
  - Oesophageal dilatation [Unknown]
  - Ulcer [Unknown]
  - Dysphagia [Unknown]
  - Product dose omission issue [Unknown]
